FAERS Safety Report 19655766 (Version 4)
Quarter: 2021Q3

REPORT INFORMATION
  Report Type: Report from Study
  Country: US (occurrence: US)
  Receive Date: 20210804
  Receipt Date: 20210831
  Transmission Date: 20211014
  Serious: Yes (Other)
  Sender: FDA-Public Use
  Company Number: US-VIIV HEALTHCARE LIMITED-US2021GSK164486

PATIENT
  Age: 26 Year
  Sex: Female

DRUGS (9)
  1. ATAZANAVIR. [Suspect]
     Active Substance: ATAZANAVIR
     Indication: HIV INFECTION
     Dosage: 300 MG, QD (GENERIC AUROBINDO)
     Route: 048
     Dates: start: 20200512, end: 20200706
  2. ATAZANAVIR. [Suspect]
     Active Substance: ATAZANAVIR
     Dosage: 300 MG, QD
     Route: 048
     Dates: start: 20200706, end: 20200911
  3. RITONAVIR. [Suspect]
     Active Substance: RITONAVIR
     Dosage: 1 DF, QD
     Route: 048
     Dates: start: 20200911, end: 20201126
  4. BIKTARVY [Suspect]
     Active Substance: BICTEGRAVIR SODIUM\EMTRICITABINE\TENOFOVIR ALAFENAMIDE FUMARATE
     Indication: HIV INFECTION
     Dosage: 1 TAB/CAPS, QD
     Route: 048
     Dates: end: 20200512
  5. ABACAVIRSULPHATE+DOLUTEGRAVIR+LAMIVUDINE [Suspect]
     Active Substance: ABACAVIR SULFATE\DOLUTEGRAVIR SODIUM\LAMIVUDINE
     Indication: HIV INFECTION
     Dosage: 1 TAB/CAPS, QD
     Route: 048
     Dates: start: 20200512
  6. EVOTAZ [Suspect]
     Active Substance: ATAZANAVIR SULFATE\COBICISTAT
     Indication: HIV INFECTION
     Dosage: 1 TAB/CAPS, QD
     Route: 048
     Dates: end: 20200512
  7. RITONAVIR. [Suspect]
     Active Substance: RITONAVIR
     Dosage: 1 DF, QD
     Route: 048
     Dates: start: 20200706, end: 20200911
  8. ATAZANAVIR. [Suspect]
     Active Substance: ATAZANAVIR
     Dosage: 300 MG, QD
     Route: 048
     Dates: start: 20200911, end: 20201126
  9. RITONAVIR. [Suspect]
     Active Substance: RITONAVIR
     Indication: HIV INFECTION
     Dosage: 1 TAB/CAPS, QD (GENERIC ? HIKMA)
     Dates: start: 20200512, end: 20200706

REACTIONS (4)
  - Polyhydramnios [Unknown]
  - Live birth [Unknown]
  - Exposure during pregnancy [Unknown]
  - Premature delivery [Unknown]

NARRATIVE: CASE EVENT DATE: 20201002
